FAERS Safety Report 19495146 (Version 1)
Quarter: 2021Q3

REPORT INFORMATION
  Report Type: Spontaneous
  Country: DE (occurrence: DE)
  Receive Date: 20210706
  Receipt Date: 20210706
  Transmission Date: 20211014
  Serious: Yes (Hospitalization)
  Sender: FDA-Public Use
  Company Number: DE-TEVA-2021-DE-1928372

PATIENT
  Age: 79 Year
  Sex: Female

DRUGS (7)
  1. LERCANIDIPIN [Concomitant]
     Active Substance: LERCANIDIPINE
     Dosage: 10 MG, 1?0.5?0?0
     Route: 048
  2. SOLIFENACIN [Suspect]
     Active Substance: SOLIFENACIN
     Dosage: 5 MILLIGRAM DAILY;  1?0?0?0
     Route: 048
  3. HYGROTON [Suspect]
     Active Substance: CHLORTHALIDONE
     Dosage: 25 MILLIGRAM DAILY;  1?0?0?0
     Route: 048
  4. IBUPROFEN. [Concomitant]
     Active Substance: IBUPROFEN
     Dosage: 600 MG, AS NEEDED
     Route: 048
  5. BETAHISTIN [Concomitant]
     Active Substance: BETAHISTINE
     Dosage: 1 DOSAGE FORMS DAILY; 24 MG, 0.5?0.5?0?0
     Route: 048
  6. CANDESARTAN. [Concomitant]
     Active Substance: CANDESARTAN
     Dosage: 2 DOSAGE FORMS DAILY; 16 MG, 2?0?0?0
     Route: 048
  7. OXYCODON [Suspect]
     Active Substance: OXYCODONE
     Route: 048

REACTIONS (5)
  - Arthralgia [Unknown]
  - Weight increased [Unknown]
  - General physical health deterioration [Unknown]
  - Spinal pain [Unknown]
  - Fall [Unknown]
